FAERS Safety Report 10080112 (Version 1)
Quarter: 2014Q2

REPORT INFORMATION
  Report Type: Spontaneous
  Country: GB (occurrence: GB)
  Receive Date: 20140415
  Receipt Date: 20140415
  Transmission Date: 20141212
  Serious: Yes (Other)
  Sender: FDA-Public Use
  Company Number: GB-MYLANLABS-2014S1007763

PATIENT
  Age: 49 Year
  Sex: Female
  Weight: 74 kg

DRUGS (6)
  1. FLUOXETINE [Suspect]
     Dates: start: 20140304
  2. BECONASE [Concomitant]
     Dates: start: 20131203, end: 20131231
  3. CITALOPRAM [Concomitant]
     Dates: start: 20140320
  4. FLUTICASONE FUROATE [Concomitant]
     Dates: start: 20140117, end: 20140214
  5. NAPROXEN [Concomitant]
     Dates: start: 20140304
  6. OMEPRAZOLE [Concomitant]
     Dates: start: 20140117

REACTIONS (1)
  - Muscle twitching [Recovered/Resolved]
